FAERS Safety Report 23726490 (Version 1)
Quarter: 2024Q2

REPORT INFORMATION
  Report Type: Spontaneous
  Country: US (occurrence: US)
  Receive Date: 20240410
  Receipt Date: 20240410
  Transmission Date: 20240716
  Serious: Yes (Hospitalization)
  Sender: FDA-Public Use
  Company Number: US-GLAXOSMITHKLINE-US2024GSK045182

PATIENT

DRUGS (16)
  1. VALACYCLOVIR [Suspect]
     Active Substance: VALACYCLOVIR HYDROCHLORIDE
     Indication: Herpes simplex
     Dosage: 1 G, TID
     Route: 048
  2. VALACYCLOVIR [Suspect]
     Active Substance: VALACYCLOVIR HYDROCHLORIDE
     Dosage: 1 G, QD
     Route: 048
  3. VALACYCLOVIR [Suspect]
     Active Substance: VALACYCLOVIR HYDROCHLORIDE
     Dosage: 1 G, TID
     Route: 048
  4. ACITRETIN [Suspect]
     Active Substance: ACITRETIN
     Indication: Cutaneous symptom
     Dosage: 25 MG, 1D
  5. ACITRETIN [Suspect]
     Active Substance: ACITRETIN
     Dosage: 10 TO 25 MG PER DAY
     Dates: end: 202203
  6. DOXYCYCLINE [Concomitant]
     Active Substance: DOXYCYCLINE
     Indication: Herpes simplex
     Dosage: UNK
  7. DOXYCYCLINE [Concomitant]
     Active Substance: DOXYCYCLINE
     Indication: Cutaneous symptom
  8. ISOTRETINOIN [Concomitant]
     Active Substance: ISOTRETINOIN
     Indication: Herpes simplex
     Dosage: UNK
  9. ISOTRETINOIN [Concomitant]
     Active Substance: ISOTRETINOIN
     Indication: Cutaneous symptom
  10. SALICYLIC ACID [Concomitant]
     Active Substance: SALICYLIC ACID
     Indication: Herpes simplex
     Dosage: UNK
  11. SALICYLIC ACID [Concomitant]
     Active Substance: SALICYLIC ACID
     Indication: Cutaneous symptom
  12. ACYCLOVIR [Concomitant]
     Active Substance: ACYCLOVIR
     Indication: Antiviral prophylaxis
     Dosage: 400 MG, BID
     Dates: start: 201804
  13. ACYCLOVIR [Concomitant]
     Active Substance: ACYCLOVIR
     Dosage: 950 MG, TID
     Route: 042
  14. ACYCLOVIR [Concomitant]
     Active Substance: ACYCLOVIR
     Dosage: 400 MG, BID
     Route: 048
  15. ACYCLOVIR [Concomitant]
     Active Substance: ACYCLOVIR
     Dosage: 750 MG, TID
     Route: 042
  16. APREMILAST [Concomitant]
     Active Substance: APREMILAST
     Indication: Cutaneous symptom
     Dosage: UNK

REACTIONS (19)
  - Condition aggravated [Recovering/Resolving]
  - Papule [Recovering/Resolving]
  - Hyperkeratosis [Recovering/Resolving]
  - Erythema [Recovering/Resolving]
  - Skin plaque [Recovering/Resolving]
  - Eczema weeping [Recovering/Resolving]
  - Blister [Recovering/Resolving]
  - Chills [Recovering/Resolving]
  - Gait disturbance [Recovering/Resolving]
  - Pain of skin [Recovering/Resolving]
  - Skin lesion [Recovering/Resolving]
  - Pyrexia [Recovering/Resolving]
  - Eye symptom [Recovering/Resolving]
  - Fatigue [Recovering/Resolving]
  - Vision blurred [Recovering/Resolving]
  - Dysuria [Recovering/Resolving]
  - Micturition urgency [Recovering/Resolving]
  - Keratitis [Recovering/Resolving]
  - Treatment noncompliance [Unknown]
